FAERS Safety Report 12819080 (Version 1)
Quarter: 2016Q4

REPORT INFORMATION
  Report Type: Spontaneous
  Country: US (occurrence: US)
  Receive Date: 20161006
  Receipt Date: 20161006
  Transmission Date: 20170207
  Serious: No
  Sender: FDA-Public Use
  Company Number: US-GLAXOSMITHKLINE-US2016145695

PATIENT
  Sex: Male

DRUGS (10)
  1. ETODOLAC. [Concomitant]
     Active Substance: ETODOLAC
  2. NIACIN. [Concomitant]
     Active Substance: NIACIN
  3. ANORO ELLIPTA [Suspect]
     Active Substance: UMECLIDINIUM BROMIDE\VILANTEROL TRIFENATATE
     Indication: PRODUCT USED FOR UNKNOWN INDICATION
     Dosage: UNK
     Route: 055
     Dates: start: 201609
  4. ALFUZOSIN [Concomitant]
     Active Substance: ALFUZOSIN
  5. DIGOXIN. [Concomitant]
     Active Substance: DIGOXIN
  6. POTASSIUM CHLORIDE. [Concomitant]
     Active Substance: POTASSIUM CHLORIDE
  7. RANOLAZINE [Concomitant]
     Active Substance: RANOLAZINE
  8. XANAX [Concomitant]
     Active Substance: ALPRAZOLAM
  9. SIMVASTATIN. [Concomitant]
     Active Substance: SIMVASTATIN
  10. CARVEDILOL. [Concomitant]
     Active Substance: CARVEDILOL

REACTIONS (3)
  - Drug ineffective [Unknown]
  - Device use error [Unknown]
  - Wrong technique in product usage process [Unknown]
